FAERS Safety Report 8861039 (Version 1)
Quarter: 2012Q4

REPORT INFORMATION
  Report Type: 
  Country: US (occurrence: US)
  Receive Date: 20121025
  Receipt Date: 20121025
  Transmission Date: 20130627
  Serious: No
  Sender: FDA-Public Use
  Company Number: US-AMGEN-USASP2012015150

PATIENT
  Age: 62 Year
  Sex: Female

DRUGS (5)
  1. ENBREL [Suspect]
     Indication: PRODUCT USED FOR UNKNOWN INDICATION
     Dosage: 50 mg, qwk
     Route: 058
  2. SYNTHROID [Concomitant]
     Dosage: 50 mug, UNK
  3. WELLBUTRIN [Concomitant]
     Dosage: 100 mg, UNK
  4. TRAZODONE [Concomitant]
     Dosage: 150 mg, UNK
  5. FLEXERIL                           /00428402/ [Concomitant]
     Dosage: 5 mg, UNK

REACTIONS (2)
  - Injection site pain [Unknown]
  - Hypersensitivity [Unknown]
